FAERS Safety Report 6198026-3 (Version None)
Quarter: 2009Q2

REPORT INFORMATION
  Report Type: 
  Country: None (occurrence: None)
  Receive Date: 20090518
  Receipt Date: 20090507
  Transmission Date: 20091009
  Serious: Yes (Hospitalization, Other)
  Sender: FDA-Public Use
  Company Number: 60181

PATIENT
  Age: 71 Year
  Sex: Male

DRUGS (1)
  1. CYCLOSPORINE [Suspect]
     Indication: IMMUNOSUPPRESSANT DRUG THERAPY
     Dosage: 420 MG DAILY; 350 MG TWICE DAILY

REACTIONS (5)
  - DEHYDRATION [None]
  - DIABETES MELLITUS [None]
  - DRUG LEVEL ABOVE THERAPEUTIC [None]
  - HYPOPHAGIA [None]
  - THERAPEUTIC AGENT TOXICITY [None]
